FAERS Safety Report 8991119 (Version 1)
Quarter: 2012Q4

REPORT INFORMATION
  Report Type: Spontaneous
  Country: US (occurrence: None)
  Receive Date: 20121227
  Receipt Date: 20121227
  Transmission Date: 20130627
  Serious: Yes (Other)
  Sender: FDA-Public Use
  Company Number: None

PATIENT
  Sex: Male
  Weight: 68.04 kg

DRUGS (1)
  1. METHOTREXATE [Suspect]
     Indication: JUVENILE RHEUMATOID ARTHRITIS
     Dosage: injectable q week Subcutaneous 057
     Route: 058
     Dates: start: 20120928

REACTIONS (6)
  - Nausea [None]
  - Abdominal pain [None]
  - Pallor [None]
  - Asthenia [None]
  - Cold sweat [None]
  - Wheelchair user [None]
